FAERS Safety Report 25388641 (Version 5)
Quarter: 2025Q4

REPORT INFORMATION
  Report Type: Spontaneous
  Country: US (occurrence: US)
  Receive Date: 20250603
  Receipt Date: 20251126
  Transmission Date: 20260117
  Serious: Yes (Hospitalization, Other)
  Sender: SUNOVION
  Company Number: US-SMPA-2025SPA006829

PATIENT
  Age: 75 Year
  Sex: Male

DRUGS (3)
  1. ORGOVYX [Suspect]
     Active Substance: RELUGOLIX
     Indication: Prostate cancer
     Dosage: 360 MG, SINGLE
     Route: 048
     Dates: start: 20221205, end: 20221205
  2. ORGOVYX [Suspect]
     Active Substance: RELUGOLIX
     Dosage: 120 MG, QD
     Route: 048
     Dates: start: 20221206
  3. IODINE [Concomitant]
     Active Substance: IODINE
     Dosage: UNK

REACTIONS (4)
  - Myelopathy [Unknown]
  - Spinal cord infection [Unknown]
  - Therapeutic procedure [Unknown]
  - Muscular weakness [Unknown]

NARRATIVE: CASE EVENT DATE: 20251016
